FAERS Safety Report 7232459-9 (Version None)
Quarter: 2011Q1

REPORT INFORMATION
  Report Type: 
  Country: None (occurrence: None)
  Receive Date: 20110119
  Receipt Date: 20110114
  Transmission Date: 20110831
  Serious: No
  Sender: FDA-Public Use
  Company Number: US-PFIZER INC-2011010250

PATIENT
  Sex: Female
  Weight: 136.5 kg

DRUGS (24)
  1. EFFEXOR XR [Concomitant]
     Indication: DEPRESSION
     Dosage: 75 MG, 2X/DAY
     Route: 048
  2. CELEBREX [Concomitant]
     Dosage: 200 MG, 1X/DAY
     Route: 048
  3. MONTELUKAST SODIUM [Concomitant]
     Indication: ASTHMA
     Dosage: 10 MG, 1X/DAY
     Route: 048
  4. MONTELUKAST SODIUM [Concomitant]
     Indication: CHRONIC OBSTRUCTIVE PULMONARY DISEASE
  5. OXYGEN [Concomitant]
     Indication: BRONCHITIS CHRONIC
  6. DETROL LA [Concomitant]
     Indication: HYPERTONIC BLADDER
     Dosage: 4 MG, 2X/DAY
     Route: 048
     Dates: end: 20110104
  7. ZOLPIDEM TARTRATE [Suspect]
     Indication: SLEEP DISORDER
     Dosage: 6.25 MG, 2X/DAY
     Route: 048
     Dates: start: 20100101, end: 20110109
  8. OXYGEN [Concomitant]
     Indication: ASTHMA
     Dosage: UNK
  9. ALBUTEROL [Concomitant]
     Indication: CHRONIC OBSTRUCTIVE PULMONARY DISEASE
     Dosage: 4 MG, 1X/DAY
     Route: 048
  10. LORAZEPAM [Suspect]
     Indication: ANXIETY
     Dosage: 1 MG, AS NEEDED
     Route: 048
     Dates: start: 20101030, end: 20110107
  11. TYLENOL [Concomitant]
     Indication: OSTEOARTHRITIS
     Dosage: UNK
     Route: 048
  12. LIPITOR [Concomitant]
     Indication: BLOOD CHOLESTEROL INCREASED
     Dosage: 20 MG, 1X/DAY
     Route: 048
  13. PROTONIX [Concomitant]
     Indication: GASTROOESOPHAGEAL REFLUX DISEASE
     Dosage: 40 MG, 1X/DAY
     Route: 048
  14. CENTRUM [Concomitant]
     Dosage: UNK
     Route: 048
  15. VITAMIN B-12 [Concomitant]
     Indication: THINKING ABNORMAL
     Dosage: 2500 UG, UNK
     Route: 048
  16. ALBUTEROL [Concomitant]
     Indication: ASTHMA
  17. EFFEXOR XR [Concomitant]
     Indication: POST-TRAUMATIC STRESS DISORDER
  18. BENICAR [Concomitant]
     Indication: HYPERTENSION
     Dosage: 20 MG, 1X/DAY
     Route: 048
  19. MONTELUKAST SODIUM [Concomitant]
     Indication: BRONCHITIS CHRONIC
  20. CIPROFLOXACIN HYDROCHLORIDE [Concomitant]
     Indication: URINARY INCONTINENCE
     Dosage: 500 MG, 2X/DAY
     Route: 048
  21. CEPHALEXIN [Concomitant]
     Indication: BLADDER DISORDER
     Dosage: 250 MG, 1X/DAY
     Route: 048
  22. ADVAIR DISKUS 100/50 [Concomitant]
     Dosage: [FLUTICASONE PROPIONATE 500 MG]/[SALMETEROL XINAFOATE 50 MG]
  23. TOVIAZ [Suspect]
     Indication: HYPERTONIC BLADDER
     Dosage: 8 MG, 1X/DAY
     Route: 048
     Dates: start: 20110106
  24. ALBUTEROL [Concomitant]
     Indication: BRONCHITIS CHRONIC

REACTIONS (4)
  - DRY MOUTH [None]
  - DYSKINESIA [None]
  - SLEEP DISORDER [None]
  - DIARRHOEA [None]
